FAERS Safety Report 5643857-9 (Version None)
Quarter: 2008Q1

REPORT INFORMATION
  Report Type: 
  Country: None (occurrence: None)
  Receive Date: 20080131
  Receipt Date: 20071011
  Transmission Date: 20080703
  Serious: No
  Sender: FDA-Public Use
  Company Number: 163-21880-07100705

PATIENT
  Age: 61 Year
  Sex: Male

DRUGS (2)
  1. REVLIMID [Suspect]
     Dosage: 25 MG, OD X 3WK, ORAL 10 MG, OD, 3 TIMES PER WEEK, ORAL
     Route: 048
     Dates: start: 20070827, end: 20070901
  2. REVLIMID [Suspect]
     Dosage: 25 MG, OD X 3WK, ORAL 10 MG, OD, 3 TIMES PER WEEK, ORAL
     Route: 048
     Dates: start: 20071011

REACTIONS (2)
  - PLATELET COUNT DECREASED [None]
  - RED BLOOD CELL COUNT DECREASED [None]
